FAERS Safety Report 13080506 (Version 1)
Quarter: 2017Q1

REPORT INFORMATION
  Report Type: Spontaneous
  Country: KR (occurrence: KR)
  Receive Date: 20170103
  Receipt Date: 20170103
  Transmission Date: 20170428
  Serious: Yes (Death, Hospitalization, Other)
  Sender: FDA-Public Use
  Company Number: KR-ASTELLAS-2016US051322

PATIENT
  Age: 57 Year
  Sex: Female

DRUGS (1)
  1. TACROLIMUS. [Suspect]
     Active Substance: TACROLIMUS
     Indication: PROPHYLAXIS AGAINST GRAFT VERSUS HOST DISEASE
     Dosage: UNK UNK, UNKNOWN FREQ.
     Route: 065

REACTIONS (13)
  - Cystitis haemorrhagic [Unknown]
  - Pleural effusion [Unknown]
  - Meningitis viral [Unknown]
  - Thrombotic microangiopathy [Not Recovered/Not Resolved]
  - Sepsis [Unknown]
  - Off label use [Unknown]
  - Oliguria [Not Recovered/Not Resolved]
  - Hypovolaemia [Unknown]
  - Non-cardiogenic pulmonary oedema [Not Recovered/Not Resolved]
  - Uraemic encephalopathy [Unknown]
  - Dialysis disequilibrium syndrome [Unknown]
  - Encephalitis viral [Fatal]
  - Azotaemia [Not Recovered/Not Resolved]
